FAERS Safety Report 12638759 (Version 3)
Quarter: 2017Q2

REPORT INFORMATION
  Report Type: Spontaneous
  Country: JP (occurrence: JP)
  Receive Date: 20160809
  Receipt Date: 20170502
  Transmission Date: 20170830
  Serious: No
  Sender: FDA-Public Use
  Company Number: JP-009507513-1608JPN005376

PATIENT
  Age: 68 Year
  Sex: Female
  Weight: 44.3 kg

DRUGS (4)
  1. PEGINTRON [Suspect]
     Active Substance: PEGINTERFERON ALFA-2B
     Indication: MALIGNANT MELANOMA
     Dosage: 6 MICROGRAM PER KILOGRAM, QW
     Route: 058
     Dates: start: 20160226, end: 20160421
  2. JUZENTAIHOTO [Concomitant]
     Indication: MALIGNANT MELANOMA
     Dosage: 7.5 G, UNK
     Route: 048
     Dates: start: 20150327
  3. PEGINTRON [Suspect]
     Active Substance: PEGINTERFERON ALFA-2B
     Dosage: 3 MICROGRAM PER KILOGRAM, QW
     Route: 058
     Dates: start: 20160422, end: 20160603
  4. XYZAL [Concomitant]
     Active Substance: LEVOCETIRIZINE DIHYDROCHLORIDE
     Dosage: 5 MG, UNK
     Route: 048
     Dates: start: 20150319

REACTIONS (2)
  - Neutrophil count decreased [Unknown]
  - Platelet count decreased [Unknown]

NARRATIVE: CASE EVENT DATE: 20160304
